FAERS Safety Report 13067640 (Version 3)
Quarter: 2017Q1

REPORT INFORMATION
  Report Type: Spontaneous
  Country: JP (occurrence: JP)
  Receive Date: 20161228
  Receipt Date: 20170204
  Transmission Date: 20170428
  Serious: Yes (Hospitalization, Other)
  Sender: FDA-Public Use
  Company Number: JP-AMGEN-JPNSP2016183471

PATIENT
  Age: 60 Year
  Sex: Female
  Weight: 45 kg

DRUGS (10)
  1. MAGNESIUM OXIDE. [Concomitant]
     Active Substance: MAGNESIUM OXIDE
     Dosage: 250 MG, 6X/DAY
     Route: 048
  2. METHYCOBAL [Concomitant]
     Active Substance: METHYLCOBALAMIN
     Dosage: 500 MUG, TID
     Route: 048
  3. G-LASTA [Suspect]
     Active Substance: PEGFILGRASTIM
     Indication: COLONY STIMULATING FACTOR PROPHYLAXIS
     Dosage: UNK
     Route: 058
     Dates: start: 20161015, end: 20161109
  4. CYCLOPHOSPHAMIDE. [Concomitant]
     Active Substance: CYCLOPHOSPHAMIDE
     Dosage: UNK
     Route: 041
  5. PACLITAXEL. [Concomitant]
     Active Substance: PACLITAXEL
     Indication: VULVAL CANCER
     Dosage: UNK
     Route: 041
     Dates: start: 20160816, end: 20161109
  6. CARBOPLATIN. [Concomitant]
     Active Substance: CARBOPLATIN
     Indication: VULVAL CANCER
     Dosage: UNK
     Route: 041
     Dates: start: 20160816, end: 20161109
  7. LOXOPROFEN NA [Concomitant]
     Active Substance: LOXOPROFEN SODIUM
     Dosage: 60 MG, TID
     Route: 048
  8. REBAMIPIDE [Concomitant]
     Active Substance: REBAMIPIDE
     Dosage: 100 MG, TID
     Route: 048
  9. DOCETAXEL. [Concomitant]
     Active Substance: DOCETAXEL
     Dosage: UNK
     Route: 041
  10. LYRICA [Concomitant]
     Active Substance: PREGABALIN
     Dosage: 75 MG, BID
     Route: 048

REACTIONS (3)
  - Pyrexia [Unknown]
  - Vasculitis [Not Recovered/Not Resolved]
  - Aortic wall hypertrophy [Unknown]

NARRATIVE: CASE EVENT DATE: 201611
